FAERS Safety Report 9368991 (Version 2)
Quarter: 2013Q3

REPORT INFORMATION
  Report Type: Spontaneous
  Country: US (occurrence: US)
  Receive Date: 20130626
  Receipt Date: 20130724
  Transmission Date: 20140515
  Serious: Yes (Hospitalization, Other)
  Sender: FDA-Public Use
  Company Number: US-BIOGENIDEC-2013BI054883

PATIENT
  Age: 45 Year
  Sex: Female

DRUGS (1)
  1. AVONEX [Suspect]
     Indication: MULTIPLE SCLEROSIS
     Route: 030

REACTIONS (8)
  - Cerebrovascular accident [Unknown]
  - Angina pectoris [Recovered/Resolved]
  - Hypertension [Not Recovered/Not Resolved]
  - Vitamin B12 decreased [Recovered/Resolved]
  - Vitamin D decreased [Recovered/Resolved]
  - Muscle spasms [Not Recovered/Not Resolved]
  - Dizziness [Recovered/Resolved]
  - Headache [Recovered/Resolved]
